FAERS Safety Report 6546296-1 (Version None)
Quarter: 2010Q1

REPORT INFORMATION
  Report Type: 
  Country: None (occurrence: None)
  Receive Date: 20100122
  Receipt Date: 20100111
  Transmission Date: 20100710
  Serious: Yes (Hospitalization)
  Sender: FDA-Public Use
  Company Number: US-ROCHE-571710

PATIENT
  Sex: Female
  Weight: 1.9 kg

DRUGS (4)
  1. RIBAVIRIN [Suspect]
     Indication: HEPATITIS C
     Route: 064
     Dates: start: 20080301, end: 20081126
  2. PEG-INTRON [Suspect]
     Indication: HEPATITIS C
     Route: 064
     Dates: start: 20080501, end: 20081126
  3. METHADONE [Suspect]
     Indication: DRUG DEPENDENCE
  4. FLINTSTONES VITAMIN [Concomitant]
     Dates: start: 20090409

REACTIONS (4)
  - BLOOD BILIRUBIN INCREASED [None]
  - DRUG EXPOSURE DURING PREGNANCY [None]
  - PREMATURE BABY [None]
  - RESPIRATORY DISTRESS [None]
